FAERS Safety Report 7490650-0 (Version None)
Quarter: 2011Q2

REPORT INFORMATION
  Report Type: 
  Country: None (occurrence: None)
  Receive Date: 20110512
  Receipt Date: 20110504
  Transmission Date: 20111010
  Serious: No
  Sender: FDA-Public Use
  Company Number: 2011-00293

PATIENT
  Age: 45 Year
  Sex: Female
  Weight: 54.4316 kg

DRUGS (1)
  1. ZICAM COLD REMEDY PLUS LIQUI-LOZ [Suspect]
     Dosage: AS DIRECTED, 2 DAYS
     Dates: start: 20110503, end: 20110504

REACTIONS (1)
  - AGEUSIA [None]
